FAERS Safety Report 13751658 (Version 1)
Quarter: 2017Q3

REPORT INFORMATION
  Report Type: Spontaneous
  Country: US (occurrence: US)
  Receive Date: 20170713
  Receipt Date: 20170713
  Transmission Date: 20171127
  Serious: No
  Sender: FDA-Public Use
  Company Number: US-ASTELLAS-2017US022320

PATIENT
  Sex: Female

DRUGS (1)
  1. MYRBETRIQ [Suspect]
     Active Substance: MIRABEGRON
     Indication: PRODUCT USED FOR UNKNOWN INDICATION
     Route: 065
     Dates: start: 2016, end: 201705

REACTIONS (13)
  - Arthralgia [Unknown]
  - Dizziness [Unknown]
  - Blood pressure increased [Unknown]
  - Depression [Unknown]
  - Abdominal distension [Unknown]
  - Fatigue [Unknown]
  - Headache [Unknown]
  - Memory impairment [Unknown]
  - Dry mouth [Unknown]
  - Vision blurred [Unknown]
  - Abdominal pain upper [Unknown]
  - Palpitations [Unknown]
  - Nausea [Unknown]
